FAERS Safety Report 14975283 (Version 1)
Quarter: 2018Q2

REPORT INFORMATION
  Report Type: Spontaneous
  Country: US (occurrence: US)
  Receive Date: 20180605
  Receipt Date: 20180605
  Transmission Date: 20180711
  Serious: Yes (Life-Threatening, Hospitalization)
  Sender: FDA-Public Use
  Company Number: US-MYLANLABS-2018M1038371

PATIENT
  Age: 8 Decade
  Sex: Female

DRUGS (15)
  1. FAMOTIDINE. [Concomitant]
     Active Substance: FAMOTIDINE
     Indication: PRODUCT USED FOR UNKNOWN INDICATION
     Route: 042
  2. DEXAMETHASONE. [Concomitant]
     Active Substance: DEXAMETHASONE
     Indication: PRODUCT USED FOR UNKNOWN INDICATION
     Route: 042
  3. NIVOLUMAB [Suspect]
     Active Substance: NIVOLUMAB
     Indication: OVARIAN CANCER METASTATIC
     Route: 065
  4. GEMCITABINE [Concomitant]
     Active Substance: GEMCITABINE\GEMCITABINE HYDROCHLORIDE
     Indication: OVARIAN CANCER METASTATIC
     Dosage: FURTHER, 500 MG/M2 EVERY 2 WEEKS
     Route: 050
  5. CARBOPLATIN. [Suspect]
     Active Substance: CARBOPLATIN
     Indication: OVARIAN CANCER METASTATIC
     Dosage: AUC 5 ON DAY 1 OF A 21-DAY CYCLE (6 CYCLES); AFTER ONE YEAR, AUC 5 ON DAY 1 OF A 28-DAY CYCLE (6 ...
     Route: 050
  6. LIPOSOMAL DOXORUBICIN HCL [Concomitant]
     Active Substance: DOXORUBICIN HYDROCHLORIDE
     Dosage: ON DAY 1 OF 28-DAY CYCLE
     Route: 065
  7. BEVACIZUMAB. [Suspect]
     Active Substance: BEVACIZUMAB
     Indication: OVARIAN CANCER METASTATIC
     Route: 065
  8. GEMCITABINE [Concomitant]
     Active Substance: GEMCITABINE\GEMCITABINE HYDROCHLORIDE
     Route: 050
  9. ONDANSETRON [Concomitant]
     Active Substance: ONDANSETRON
     Indication: PRODUCT USED FOR UNKNOWN INDICATION
     Route: 042
  10. PACLITAXEL. [Concomitant]
     Active Substance: PACLITAXEL
     Route: 065
  11. LIPOSOMAL DOXORUBICIN HCL [Concomitant]
     Active Substance: DOXORUBICIN HYDROCHLORIDE
     Indication: OVARIAN CANCER METASTATIC
     Dosage: ON DAY 1 OF A 28-DAY CYCLE; FOLLOWED BY MAINTENANCE AT 40 MG/M2 ON DAY 1 OF 28-DAY CYCLE
     Route: 065
  12. PACLITAXEL. [Concomitant]
     Active Substance: PACLITAXEL
     Indication: OVARIAN CANCER METASTATIC
     Dosage: ON DAY 1 OF A 21-DAY CYCLE; LATER, 80 MG/M2, EVERY WEEK WAS ADMINISTERED
     Route: 065
  13. CARBOPLATIN. [Suspect]
     Active Substance: CARBOPLATIN
     Dosage: AUC 2 EVERY 2 WEEKS
     Route: 050
  14. CYCLOPHOSPHAMIDE. [Concomitant]
     Active Substance: CYCLOPHOSPHAMIDE
     Indication: OVARIAN CANCER METASTATIC
     Dosage: 50 MG, QD
     Route: 048
  15. CARBOPLATIN. [Suspect]
     Active Substance: CARBOPLATIN
     Dosage: AUC 4 ON DAY 1 OF A 28-DAY CYCLE (3 CYCLES); FOLLOWED BY AUC 2 EVERY TWO WEEKS
     Route: 050

REACTIONS (1)
  - Cardiac arrest [Recovered/Resolved]
